FAERS Safety Report 7171556-3 (Version None)
Quarter: 2010Q4

REPORT INFORMATION
  Report Type: 
  Country: None (occurrence: None)
  Receive Date: 20101217
  Receipt Date: 20101213
  Transmission Date: 20110411
  Serious: Yes (Other)
  Sender: FDA-Public Use
  Company Number: SE-PFIZER INC-2009221840

PATIENT
  Age: 55 Year
  Sex: Male

DRUGS (6)
  1. ZOLOFT [Suspect]
     Indication: ANXIETY
     Dosage: 75 MG DAILY
     Dates: start: 19970101
  2. THERALEN [Concomitant]
     Dosage: BEFORE NIGHT
     Dates: start: 19970101
  3. RENNIE [Concomitant]
     Dosage: UNK
  4. LINK [Concomitant]
     Dosage: UNK
  5. DIAZEPAM [Concomitant]
     Indication: ANXIETY
     Dosage: 2.5-5 MG TWICE WEEKLY
  6. LANSOPRAZOLE [Concomitant]
     Dosage: UNK

REACTIONS (19)
  - CHEST PAIN [None]
  - CONVULSION [None]
  - DECREASED APPETITE [None]
  - DEPRESSED MOOD [None]
  - DIZZINESS [None]
  - DRUG WITHDRAWAL SYNDROME [None]
  - DYSPEPSIA [None]
  - JOINT STIFFNESS [None]
  - MIGRAINE [None]
  - NAUSEA [None]
  - READING DISORDER [None]
  - SEXUAL DYSFUNCTION [None]
  - SPEECH DISORDER [None]
  - SWEAT GLAND DISORDER [None]
  - TOOTH EXTRACTION [None]
  - TOOTHACHE [None]
  - VITAMIN D DECREASED [None]
  - VOMITING [None]
  - WHITE BLOOD CELL COUNT DECREASED [None]
